FAERS Safety Report 4520937-2 (Version None)
Quarter: 2004Q4

REPORT INFORMATION
  Report Type: 
  Country: None (occurrence: None)
  Receive Date: 20041208
  Receipt Date: 20041126
  Transmission Date: 20050328
  Serious: Yes (Hospitalization, Other)
  Sender: FDA-Public Use
  Company Number: DE-BRISTOL-MYERS SQUIBB COMPANY-12778510

PATIENT
  Age: 38 Year
  Sex: Female
  Weight: 84 kg

DRUGS (3)
  1. TAXOL [Suspect]
     Indication: BREAST CANCER
     Route: 042
     Dates: start: 20041118, end: 20041118
  2. CAPECITABINE [Suspect]
     Indication: BREAST CANCER
     Route: 048
     Dates: start: 20041118, end: 20041118
  3. ARANESP [Concomitant]
     Route: 058
     Dates: start: 20040922

REACTIONS (4)
  - CEREBELLAR ATAXIA [None]
  - DYSARTHRIA [None]
  - DYSPHAGIA [None]
  - VOMITING [None]
